FAERS Safety Report 4754826-5 (Version None)
Quarter: 2005Q3

REPORT INFORMATION
  Report Type: 
  Country: None (occurrence: None)
  Receive Date: 20050829
  Receipt Date: 20050310
  Transmission Date: 20060218
  Serious: Yes (Hospitalization, Other)
  Sender: FDA-Public Use
  Company Number: US-MERCK-0503USA01929

PATIENT
  Age: 58 Year
  Sex: Female
  Weight: 82 kg

DRUGS (6)
  1. VIOXX [Suspect]
     Indication: ARTHRALGIA
     Route: 048
     Dates: start: 20001023, end: 20020208
  2. VIOXX [Suspect]
     Route: 048
     Dates: start: 20001023, end: 20020208
  3. PREMARIN [Concomitant]
     Route: 065
  4. DIABETA [Concomitant]
     Route: 065
  5. MOTRIN [Concomitant]
     Route: 065
     Dates: start: 19990101
  6. PREMARIN [Concomitant]
     Route: 065
     Dates: start: 19950101, end: 20020101

REACTIONS (13)
  - CARDIOMYOPATHY [None]
  - CHRONIC OBSTRUCTIVE PULMONARY DISEASE [None]
  - CORONARY ARTERY DISEASE [None]
  - CORONARY ARTERY OCCLUSION [None]
  - DYSPEPSIA [None]
  - DYSPNOEA [None]
  - EMOTIONAL DISTRESS [None]
  - HYPERTENSION [None]
  - MITRAL VALVE INCOMPETENCE [None]
  - MYOCARDIAL INFARCTION [None]
  - MYOCARDIAL ISCHAEMIA [None]
  - OEDEMA PERIPHERAL [None]
  - TRICUSPID VALVE INCOMPETENCE [None]
